FAERS Safety Report 8931390 (Version 1)
Quarter: 2012Q4

REPORT INFORMATION
  Report Type: 
  Country: BR (occurrence: BR)
  Receive Date: 20121128
  Receipt Date: 20121128
  Transmission Date: 20130627
  Serious: Yes (Hospitalization)
  Sender: FDA-Public Use
  Company Number: BR-PFIZER INC-2012296300

PATIENT
  Age: 76 Year
  Sex: Female

DRUGS (1)
  1. EFEXOR XR [Suspect]
     Indication: DEPRESSION
     Dosage: 75 mg, 1x/day
     Route: 048
     Dates: start: 20120726

REACTIONS (1)
  - Hepatic cirrhosis [Unknown]
